FAERS Safety Report 18239446 (Version 1)
Quarter: 2020Q3

REPORT INFORMATION
  Report Type: Report from Study
  Country: None (occurrence: US)
  Receive Date: 20200908
  Receipt Date: 20200908
  Transmission Date: 20201103
  Serious: Yes (Other)
  Sender: FDA-Public Use
  Company Number: US-ABBVIE-20K-163-3548631-00

PATIENT
  Age: 54 Year
  Sex: Female

DRUGS (1)
  1. HUMIRA [Suspect]
     Active Substance: ADALIMUMAB
     Indication: CROHN^S DISEASE
     Route: 058

REACTIONS (4)
  - Surgical failure [Recovering/Resolving]
  - Mobility decreased [Recovering/Resolving]
  - Implantable defibrillator insertion [Recovering/Resolving]
  - Vascular graft [Recovering/Resolving]

NARRATIVE: CASE EVENT DATE: 20200713
